FAERS Safety Report 25626990 (Version 2)
Quarter: 2025Q3

REPORT INFORMATION
  Report Type: Spontaneous
  Country: IN (occurrence: IN)
  Receive Date: 20250731
  Receipt Date: 20250811
  Transmission Date: 20251021
  Serious: Yes (Death, Hospitalization)
  Sender: MYLAN
  Company Number: IN-MYLANLABS-2025M1064069

PATIENT
  Age: 52 Year
  Sex: Female

DRUGS (32)
  1. DOXORUBICIN [Suspect]
     Active Substance: DOXORUBICIN
     Indication: Alveolar rhabdomyosarcoma
     Dosage: 75 MILLIGRAM/SQ. METER, BIWEEKLY (CYCLICAL)
  2. DOXORUBICIN [Suspect]
     Active Substance: DOXORUBICIN
     Indication: Metastases to ovary
     Dosage: 75 MILLIGRAM/SQ. METER, BIWEEKLY (CYCLICAL)
     Route: 065
  3. DOXORUBICIN [Suspect]
     Active Substance: DOXORUBICIN
     Indication: Metastases to lung
     Dosage: 75 MILLIGRAM/SQ. METER, BIWEEKLY (CYCLICAL)
     Route: 065
  4. DOXORUBICIN [Suspect]
     Active Substance: DOXORUBICIN
     Dosage: 75 MILLIGRAM/SQ. METER, BIWEEKLY (CYCLICAL)
  5. ETOPOSIDE [Suspect]
     Active Substance: ETOPOSIDE
     Indication: Alveolar rhabdomyosarcoma
     Dosage: 100 MILLIGRAM/SQ. METER, BIWEEKLY (CYCLICAL)
  6. ETOPOSIDE [Suspect]
     Active Substance: ETOPOSIDE
     Indication: Metastases to ovary
     Dosage: 100 MILLIGRAM/SQ. METER, BIWEEKLY (CYCLICAL)
     Route: 065
  7. ETOPOSIDE [Suspect]
     Active Substance: ETOPOSIDE
     Indication: Metastases to lung
     Dosage: 100 MILLIGRAM/SQ. METER, BIWEEKLY (CYCLICAL)
     Route: 065
  8. ETOPOSIDE [Suspect]
     Active Substance: ETOPOSIDE
     Dosage: 100 MILLIGRAM/SQ. METER, BIWEEKLY (CYCLICAL)
  9. MEROPENEM [Suspect]
     Active Substance: MEROPENEM
     Indication: Febrile neutropenia
  10. MEROPENEM [Suspect]
     Active Substance: MEROPENEM
     Route: 042
  11. MEROPENEM [Suspect]
     Active Substance: MEROPENEM
     Route: 042
  12. MEROPENEM [Suspect]
     Active Substance: MEROPENEM
  13. VANCOMYCIN [Suspect]
     Active Substance: VANCOMYCIN
     Indication: Febrile neutropenia
  14. VANCOMYCIN [Suspect]
     Active Substance: VANCOMYCIN
     Route: 042
  15. VANCOMYCIN [Suspect]
     Active Substance: VANCOMYCIN
     Route: 042
  16. VANCOMYCIN [Suspect]
     Active Substance: VANCOMYCIN
  17. CYCLOPHOSPHAMIDE [Suspect]
     Active Substance: CYCLOPHOSPHAMIDE
     Indication: Alveolar rhabdomyosarcoma
     Dosage: 1200 MILLIGRAM/SQ. METER, BIWEEKLY (CYCLICAL)
  18. CYCLOPHOSPHAMIDE [Suspect]
     Active Substance: CYCLOPHOSPHAMIDE
     Indication: Metastases to ovary
     Dosage: 1200 MILLIGRAM/SQ. METER, BIWEEKLY (CYCLICAL)
     Route: 065
  19. CYCLOPHOSPHAMIDE [Suspect]
     Active Substance: CYCLOPHOSPHAMIDE
     Indication: Metastases to lung
     Dosage: 1200 MILLIGRAM/SQ. METER, BIWEEKLY (CYCLICAL)
     Route: 065
  20. CYCLOPHOSPHAMIDE [Suspect]
     Active Substance: CYCLOPHOSPHAMIDE
     Dosage: 1200 MILLIGRAM/SQ. METER, BIWEEKLY (CYCLICAL)
  21. IFOSFAMIDE [Suspect]
     Active Substance: IFOSFAMIDE
     Indication: Alveolar rhabdomyosarcoma
     Dosage: 1800 MILLIGRAM/SQ. METER, BID (CYCLICAL)
  22. IFOSFAMIDE [Suspect]
     Active Substance: IFOSFAMIDE
     Indication: Metastases to ovary
     Dosage: 1800 MILLIGRAM/SQ. METER, BID (CYCLICAL)
     Route: 065
  23. IFOSFAMIDE [Suspect]
     Active Substance: IFOSFAMIDE
     Indication: Metastases to lung
     Dosage: 1800 MILLIGRAM/SQ. METER, BID (CYCLICAL)
     Route: 065
  24. IFOSFAMIDE [Suspect]
     Active Substance: IFOSFAMIDE
     Dosage: 1800 MILLIGRAM/SQ. METER, BID (CYCLICAL)
  25. VINCRISTINE [Suspect]
     Active Substance: VINCRISTINE
     Indication: Alveolar rhabdomyosarcoma
     Dosage: 1.5 MILLIGRAM/SQ. METER, CAPPING AT 2 MG,BIWEEKLY (CYCLICAL)
  26. VINCRISTINE [Suspect]
     Active Substance: VINCRISTINE
     Indication: Metastases to ovary
     Dosage: 1.5 MILLIGRAM/SQ. METER, CAPPING AT 2 MG,BIWEEKLY (CYCLICAL)
     Route: 065
  27. VINCRISTINE [Suspect]
     Active Substance: VINCRISTINE
     Indication: Metastases to lung
     Dosage: 1.5 MILLIGRAM/SQ. METER, CAPPING AT 2 MG,BIWEEKLY (CYCLICAL)
     Route: 065
  28. VINCRISTINE [Suspect]
     Active Substance: VINCRISTINE
     Dosage: 1.5 MILLIGRAM/SQ. METER, CAPPING AT 2 MG,BIWEEKLY (CYCLICAL)
  29. AMIKACIN [Suspect]
     Active Substance: AMIKACIN
     Indication: Febrile neutropenia
  30. AMIKACIN [Suspect]
     Active Substance: AMIKACIN
     Route: 042
  31. AMIKACIN [Suspect]
     Active Substance: AMIKACIN
     Route: 042
  32. AMIKACIN [Suspect]
     Active Substance: AMIKACIN

REACTIONS (5)
  - Myelosuppression [Fatal]
  - Febrile neutropenia [Fatal]
  - Septic shock [Fatal]
  - Drug ineffective for unapproved indication [Fatal]
  - Off label use [Unknown]
